FAERS Safety Report 19460763 (Version 7)
Quarter: 2025Q1

REPORT INFORMATION
  Report Type: Other
  Country: AU (occurrence: AU)
  Receive Date: 20210625
  Receipt Date: 20250314
  Transmission Date: 20250408
  Serious: Yes (Other)
  Sender: TOLMAR
  Company Number: AU-TOLMAR, INC.-21AU027642

PATIENT
  Sex: Male

DRUGS (9)
  1. ELIGARD [Suspect]
     Active Substance: LEUPROLIDE ACETATE
     Indication: Prostate cancer
     Dosage: 45 MILLIGRAM, Q 6 MONTH
     Dates: start: 20191123
  2. ELIGARD [Suspect]
     Active Substance: LEUPROLIDE ACETATE
     Dosage: 45 MILLIGRAM, Q 6 MONTH
  3. ELIGARD [Suspect]
     Active Substance: LEUPROLIDE ACETATE
     Dosage: 45 MILLIGRAM, Q 6 MONTH
  4. ELIGARD [Suspect]
     Active Substance: LEUPROLIDE ACETATE
     Dosage: 45 MILLIGRAM, Q 6 MONTH
  5. ELIGARD [Suspect]
     Active Substance: LEUPROLIDE ACETATE
     Dosage: 45 MILLIGRAM, Q 6 MONTH
  6. ELIGARD [Suspect]
     Active Substance: LEUPROLIDE ACETATE
     Dosage: 45 MILLIGRAM, Q 6 MONTH
     Dates: start: 20230815
  7. XTANDI [Suspect]
     Active Substance: ENZALUTAMIDE
     Indication: Product used for unknown indication
  8. LYNPARZA [Suspect]
     Active Substance: OLAPARIB
     Indication: Product used for unknown indication
  9. PROLIA [Concomitant]
     Active Substance: DENOSUMAB
     Indication: Product used for unknown indication

REACTIONS (13)
  - Urethral obstruction [Unknown]
  - Metastases to lung [Unknown]
  - Metastases to lymph nodes [Unknown]
  - Prostatic specific antigen increased [Unknown]
  - Feeling hot [Not Recovered/Not Resolved]
  - Restless legs syndrome [Not Recovered/Not Resolved]
  - Fall [Unknown]
  - Impaired quality of life [Unknown]
  - COVID-19 [Unknown]
  - Dizziness [Not Recovered/Not Resolved]
  - Insomnia [Unknown]
  - Asthenia [Not Recovered/Not Resolved]
  - Fatigue [Unknown]

NARRATIVE: CASE EVENT DATE: 20250101
